FAERS Safety Report 6566704-X (Version None)
Quarter: 2010Q1

REPORT INFORMATION
  Report Type: 
  Country: None (occurrence: None)
  Receive Date: 20100202
  Receipt Date: 20100119
  Transmission Date: 20100710
  Serious: Yes (Hospitalization)
  Sender: FDA-Public Use
  Company Number: GB-BAXTER-2010BH001388

PATIENT
  Age: 66 Year

DRUGS (6)
  1. METRONIDAZOLE [Suspect]
     Indication: CAMPYLOBACTER INFECTION
     Route: 042
     Dates: start: 20041023, end: 20041025
  2. CEFUROXIME [Suspect]
     Indication: CAMPYLOBACTER INFECTION
     Route: 042
     Dates: start: 20041023, end: 20041026
  3. AMOXICILLIN AND CLAVULANATE POTASSIUM [Suspect]
     Indication: CAMPYLOBACTER INFECTION
     Route: 048
     Dates: start: 20041026
  4. BENDROFLUMETHIAZIDE [Concomitant]
     Indication: DRUG USE FOR UNKNOWN INDICATION
     Route: 048
  5. LOPERAMIDE [Concomitant]
     Indication: DRUG USE FOR UNKNOWN INDICATION
     Route: 048
  6. MEBEVERINE [Concomitant]
     Indication: DRUG USE FOR UNKNOWN INDICATION
     Route: 065

REACTIONS (1)
  - JAUNDICE [None]
